FAERS Safety Report 23937274 (Version 1)
Quarter: 2024Q2

REPORT INFORMATION
  Report Type: Spontaneous
  Country: US (occurrence: None)
  Receive Date: 20240603
  Receipt Date: 20240603
  Transmission Date: 20240715
  Serious: Yes (Other)
  Sender: FDA-Public Use
  Company Number: None

PATIENT
  Age: 51 Year
  Sex: Female
  Weight: 51.75 kg

DRUGS (1)
  1. CEPHALEXIN [Suspect]
     Active Substance: CEPHALEXIN
     Indication: Surgery
     Dosage: OTHER QUANTITY : 14 CAPSULE(S);?FREQUENCY : TWICE A DAY;?
     Route: 048
     Dates: start: 20240530, end: 20240530

REACTIONS (5)
  - Erythema [None]
  - Skin swelling [None]
  - Pruritus [None]
  - Erythema [None]
  - Feeling hot [None]

NARRATIVE: CASE EVENT DATE: 20240530
